FAERS Safety Report 9302728 (Version 1)
Quarter: 2013Q2

REPORT INFORMATION
  Report Type: Spontaneous
  Country: BR (occurrence: BR)
  Receive Date: 20130522
  Receipt Date: 20130522
  Transmission Date: 20140414
  Serious: Yes (Other)
  Sender: FDA-Public Use
  Company Number: PHHY2013BR050455

PATIENT
  Sex: Female

DRUGS (2)
  1. GILENYA [Suspect]
     Indication: SECONDARY PROGRESSIVE MULTIPLE SCLEROSIS
     Route: 048
  2. GILENYA [Suspect]
     Indication: OFF LABEL USE

REACTIONS (1)
  - Muscle spasticity [Recovered/Resolved]
